FAERS Safety Report 12906257 (Version 1)
Quarter: 2016Q4

REPORT INFORMATION
  Report Type: Spontaneous
  Country: US (occurrence: US)
  Receive Date: 20161101
  Receipt Date: 20161101
  Transmission Date: 20170207
  Serious: Yes (Other)
  Sender: FDA-Public Use
  Company Number: None

PATIENT
  Age: 46 Year
  Sex: Female

DRUGS (6)
  1. TIZANIDINE. [Suspect]
     Active Substance: TIZANIDINE
  2. HCTZ [Suspect]
     Active Substance: HYDROCHLOROTHIAZIDE
  3. NORETHINDRONE. [Suspect]
     Active Substance: NORETHINDRONE
  4. METHENAMINE [Suspect]
     Active Substance: METHENAMINE
  5. FLUOXETINE [Suspect]
     Active Substance: FLUOXETINE HYDROCHLORIDE
  6. AMPYRA [Suspect]
     Active Substance: DALFAMPRIDINE
     Indication: MULTIPLE SCLEROSIS
     Route: 048
     Dates: start: 201006

REACTIONS (2)
  - Urinary tract infection [None]
  - Escherichia test positive [None]

NARRATIVE: CASE EVENT DATE: 20160216
